FAERS Safety Report 10586690 (Version 1)
Quarter: 2014Q4

REPORT INFORMATION
  Report Type: Report from Study
  Country: NL (occurrence: NL)
  Receive Date: 20141117
  Receipt Date: 20141117
  Transmission Date: 20150529
  Serious: Yes (Death)
  Sender: FDA-Public Use
  Company Number: NL-AMGEN-NLDSL2014088465

PATIENT
  Age: 68 Year
  Sex: Male

DRUGS (2)
  1. NEULASTA [Suspect]
     Active Substance: PEGFILGRASTIM
     Indication: PROPHYLAXIS
     Dosage: 10 MG/ML, Q2WK
     Route: 058
     Dates: start: 20131221, end: 20141113
  2. ARANESP [Suspect]
     Active Substance: DARBEPOETIN ALFA
     Indication: ANAEMIA
     Dosage: 500 MUG/ML, Q2WK
     Route: 058
     Dates: start: 20141011, end: 20141113

REACTIONS (1)
  - Death [Fatal]

NARRATIVE: CASE EVENT DATE: 20141113
